FAERS Safety Report 7932729-2 (Version None)
Quarter: 2011Q4

REPORT INFORMATION
  Report Type: 
  Country: None (occurrence: None)
  Receive Date: 20111122
  Receipt Date: 20111114
  Transmission Date: 20120403
  Serious: Yes (Other)
  Sender: FDA-Public Use
  Company Number: AU-JNJFOC-20111105998

PATIENT
  Sex: Male

DRUGS (6)
  1. INTELENCE [Suspect]
     Indication: HIV INFECTION
     Route: 048
     Dates: start: 20090801, end: 20090901
  2. TRUVADA [Suspect]
     Route: 065
  3. RITONAVIR [Suspect]
     Indication: PRODUCT USED FOR UNKNOWN INDICATION
     Route: 065
  4. DARUNAVIR ETHANOLATE [Suspect]
     Route: 048
     Dates: start: 20090907
  5. TRUVADA [Suspect]
     Indication: PRODUCT USED FOR UNKNOWN INDICATION
     Route: 065
     Dates: start: 20090907
  6. DARUNAVIR ETHANOLATE [Suspect]
     Indication: HIV INFECTION
     Route: 048

REACTIONS (5)
  - ANXIETY [None]
  - RESPIRATORY RATE INCREASED [None]
  - RASH PRURITIC [None]
  - HEADACHE [None]
  - TREMOR [None]
